FAERS Safety Report 21393912 (Version 4)
Quarter: 2022Q4

REPORT INFORMATION
  Report Type: Report from Study
  Country: ES (occurrence: ES)
  Receive Date: 20220930
  Receipt Date: 20221017
  Transmission Date: 20230113
  Serious: Yes (Hospitalization)
  Sender: FDA-Public Use
  Company Number: ES-ABBVIE-4131581

PATIENT
  Age: 58 Year
  Sex: Female

DRUGS (3)
  1. CARBIDOPA\LEVODOPA [Suspect]
     Active Substance: CARBIDOPA\LEVODOPA
     Indication: Parkinson^s disease
     Route: 050
     Dates: start: 20211111
  2. CARBIDOPA\LEVODOPA [Suspect]
     Active Substance: CARBIDOPA\LEVODOPA
  3. MORPHINE [Suspect]
     Active Substance: MORPHINE
     Indication: Pain
     Route: 065
     Dates: start: 2022

REACTIONS (9)
  - Feeling abnormal [Recovering/Resolving]
  - Abnormal behaviour [Recovering/Resolving]
  - Tremor [Not Recovered/Not Resolved]
  - Device issue [Recovered/Resolved]
  - Dyspnoea [Recovering/Resolving]
  - Pain [Recovering/Resolving]
  - Cognitive disorder [Unknown]
  - Therapeutic product effect incomplete [Unknown]
  - Somnolence [Unknown]

NARRATIVE: CASE EVENT DATE: 20220913
